FAERS Safety Report 5249181-0 (Version None)
Quarter: 2007Q1

REPORT INFORMATION
  Report Type: 
  Country: None (occurrence: None)
  Receive Date: 20070223
  Receipt Date: 20070208
  Transmission Date: 20070707
  Serious: Yes (Other)
  Sender: FDA-Public Use
  Company Number: 2007RR-05734

PATIENT
  Sex: Male

DRUGS (4)
  1. ASPIRIN [Suspect]
  2. ALCOHOL(ALCOHOL) [Suspect]
  3. IBUPROFEN [Suspect]
  4. PAROXETINE HCL [Suspect]

REACTIONS (4)
  - COMPLETED SUICIDE [None]
  - DRUG WITHDRAWAL SYNDROME [None]
  - OVERDOSE [None]
  - SUICIDE ATTEMPT [None]
